FAERS Safety Report 4544966-8 (Version None)
Quarter: 2004Q4

REPORT INFORMATION
  Report Type: 
  Country: None (occurrence: None)
  Receive Date: 20041230
  Receipt Date: 20041214
  Transmission Date: 20050328
  Serious: Yes (Hospitalization)
  Sender: FDA-Public Use
  Company Number: 2004BI001565

PATIENT
  Age: 50 Year
  Sex: Female
  Weight: 104.3273 kg

DRUGS (2)
  1. AVONEX [Suspect]
     Indication: MULTIPLE SCLEROSIS
     Dosage: 30 UG; QW; IM
     Route: 030
     Dates: start: 20040601, end: 20041028
  2. BLOOD PRESSURE PILLS [Concomitant]

REACTIONS (4)
  - CHEST X-RAY ABNORMAL [None]
  - OPEN WOUND [None]
  - SMALL INTESTINAL PERFORATION [None]
  - WOUND INFECTION STAPHYLOCOCCAL [None]
